FAERS Safety Report 8888367 (Version 2)
Quarter: 2013Q2

REPORT INFORMATION
  Report Type: Spontaneous
  Country: US (occurrence: US)
  Receive Date: 20121106
  Receipt Date: 20130403
  Transmission Date: 20140414
  Serious: No
  Sender: FDA-Public Use
  Company Number: US-ASTRAZENECA-2012SE19475

PATIENT
  Age: 57 Year
  Sex: Female

DRUGS (3)
  1. ATENOLOL [Suspect]
     Route: 065
  2. SYMBICORT PMDI [Suspect]
     Dosage: UNKNOWN FREQUENCY
     Route: 055
  3. NEXIUM [Suspect]
     Route: 048

REACTIONS (3)
  - Malaise [Unknown]
  - Vomiting [Unknown]
  - Drug dose omission [Unknown]
